FAERS Safety Report 21487494 (Version 2)
Quarter: 2022Q4

REPORT INFORMATION
  Report Type: Other
  Country: US (occurrence: None)
  Receive Date: 20221020
  Receipt Date: 20221104
  Transmission Date: 20230112
  Serious: Yes (Hospitalization)
  Sender: FDA-Public Use
  Company Number: US-ROCHE-3198612

PATIENT
  Age: 58 Year
  Sex: Female
  Weight: 71.278 kg

DRUGS (1)
  1. OCREVUS [Suspect]
     Active Substance: OCRELIZUMAB
     Indication: Relapsing-remitting multiple sclerosis
     Dosage: ONGOING: YES, 600MG INFUSION EVERY 6 MONTHS, DATE OF TREATMENT: 14/FEB/2022, 30/JUN/2021, 23/NOV/202
     Route: 042

REACTIONS (6)
  - Clostridium difficile infection [Recovered/Resolved]
  - Intestinal obstruction [Recovered/Resolved]
  - COVID-19 [Unknown]
  - Heart rate increased [Not Recovered/Not Resolved]
  - Hypertension [Not Recovered/Not Resolved]
  - Urinary tract infection [Unknown]

NARRATIVE: CASE EVENT DATE: 20210101
